FAERS Safety Report 4887642-4 (Version None)
Quarter: 2006Q1

REPORT INFORMATION
  Report Type: 
  Country: None (occurrence: None)
  Receive Date: 20060123
  Receipt Date: 20060109
  Transmission Date: 20060701
  Serious: Yes (Death, Hospitalization)
  Sender: FDA-Public Use
  Company Number: US-AVENTIS-200610284EU

PATIENT
  Age: 66 Year
  Sex: Male
  Weight: 71 kg

DRUGS (6)
  1. ENOXAPARIN [Suspect]
     Indication: ACUTE MYOCARDIAL INFARCTION
     Route: 058
     Dates: start: 20040908
  2. AMIODARONE HCL [Suspect]
     Dates: start: 20040911, end: 20040914
  3. ASPIRIN [Concomitant]
     Dosage: DOSE: UNK
  4. PLAVIX [Concomitant]
     Dosage: DOSE: UNK
  5. HEPARIN [Concomitant]
     Dosage: DOSE: UNK
  6. HEPARIN [Concomitant]
     Dosage: DOSE: UNK

REACTIONS (6)
  - CRYPTOGENIC ORGANIZING PNEUMONIA [None]
  - EMBOLISM [None]
  - HAEMOPTYSIS [None]
  - INTRACARDIAC THROMBUS [None]
  - PULMONARY ALVEOLAR HAEMORRHAGE [None]
  - RESPIRATORY FAILURE [None]
